FAERS Safety Report 10238276 (Version 1)
Quarter: 2014Q2

REPORT INFORMATION
  Report Type: Spontaneous
  Country: US (occurrence: US)
  Receive Date: 20140616
  Receipt Date: 20140616
  Transmission Date: 20141212
  Serious: No
  Sender: FDA-Public Use
  Company Number: US-PFIZER INC-2014160563

PATIENT
  Age: 64 Year
  Sex: Female
  Weight: 53.1 kg

DRUGS (1)
  1. PREMARIN [Suspect]
     Dosage: UNK, DAILY
     Route: 067

REACTIONS (6)
  - Pruritus [Unknown]
  - Anxiety [Unknown]
  - Panic attack [Unknown]
  - Condition aggravated [Unknown]
  - Discomfort [Unknown]
  - Rash [Unknown]
